FAERS Safety Report 17757897 (Version 6)
Quarter: 2020Q3

REPORT INFORMATION
  Report Type: Spontaneous
  Country: US (occurrence: US)
  Receive Date: 20200507
  Receipt Date: 20200702
  Transmission Date: 20201102
  Serious: Yes (Death, Hospitalization)
  Sender: FDA-Public Use
  Company Number: US-CELGENEUS-USA-20200501094

PATIENT
  Age: 68 Year
  Sex: Male

DRUGS (2)
  1. ABRAXANE [Suspect]
     Active Substance: PACLITAXEL
     Indication: ADENOCARCINOMA
     Dosage: 125 MILLIGRAM/SQ. METER
     Route: 041
     Dates: start: 20191021
  2. ABRAXANE [Suspect]
     Active Substance: PACLITAXEL
     Dosage: 2000 MILLIGRAM
     Route: 041
     Dates: end: 20191223

REACTIONS (12)
  - Disease progression [Fatal]
  - Jaundice extrahepatic obstructive [Recovered/Resolved with Sequelae]
  - Hepatic failure [Recovered/Resolved with Sequelae]
  - Nausea [Recovered/Resolved with Sequelae]
  - Food intolerance [Recovered/Resolved with Sequelae]
  - Dehydration [Recovered/Resolved]
  - Melaena [Recovered/Resolved with Sequelae]
  - Weight decreased [Recovered/Resolved with Sequelae]
  - Duodenal ulcer [Recovered/Resolved with Sequelae]
  - Diarrhoea [Recovered/Resolved with Sequelae]
  - Ascites [Recovered/Resolved with Sequelae]
  - Vomiting [Recovered/Resolved with Sequelae]

NARRATIVE: CASE EVENT DATE: 201912
